FAERS Safety Report 18541153 (Version 1)
Quarter: 2020Q4

REPORT INFORMATION
  Report Type: Spontaneous
  Country: US (occurrence: US)
  Receive Date: 20201124
  Receipt Date: 20201124
  Transmission Date: 20210114
  Serious: No
  Sender: FDA-Public Use
  Company Number: US-PFIZER INC-2020108911

PATIENT
  Age: 73 Year
  Sex: Female

DRUGS (4)
  1. GENOTROPIN [Suspect]
     Active Substance: SOMATROPIN
     Dosage: UNK (ALTERNATING 0.2 MG WITH 0.3 MG, 4 DAYS A WEEK)
  2. GENOTROPIN [Suspect]
     Active Substance: SOMATROPIN
     Dosage: UNK (ALTERNATING 0.2 MG WITH 0.3 MG, 4 DAYS A WEEK)
  3. GENOTROPIN [Suspect]
     Active Substance: SOMATROPIN
     Dosage: UNK (0.2 MG DAILY AND TAKE 0.4 MG EVERY THIRD DAY)
  4. GENOTROPIN [Suspect]
     Active Substance: SOMATROPIN
     Dosage: UNK (0.2 MG DAILY AND TAKE 0.4 MG EVERY THIRD DAY)

REACTIONS (5)
  - Off label use [Unknown]
  - Pruritus [Unknown]
  - Rash [Unknown]
  - Dysphonia [Unknown]
  - Skin exfoliation [Unknown]

NARRATIVE: CASE EVENT DATE: 2020
